FAERS Safety Report 12962201 (Version 1)
Quarter: 2016Q4

REPORT INFORMATION
  Report Type: Spontaneous
  Country: JP (occurrence: JP)
  Receive Date: 20161121
  Receipt Date: 20161121
  Transmission Date: 20170207
  Serious: Yes (Death)
  Sender: FDA-Public Use
  Company Number: JP-JNJFOC-20161006232

PATIENT

DRUGS (2)
  1. DUROTEP MT [Suspect]
     Active Substance: FENTANYL
     Indication: CANCER PAIN
     Route: 062
     Dates: start: 20160930, end: 20161003
  2. DUROTEP MT [Suspect]
     Active Substance: FENTANYL
     Indication: CANCER PAIN
     Dosage: AT 12:00, DOSE INCREASED TO 25 MCG/HR. AT 15:00, FURTHER INCREASED BY ADDING 12.5 MCG/HR.
     Route: 062
     Dates: start: 20161004, end: 20161005

REACTIONS (6)
  - Inadequate analgesia [Unknown]
  - Off label use [Unknown]
  - Neoplasm malignant [Fatal]
  - Inappropriate schedule of drug administration [Unknown]
  - Malaise [Recovered/Resolved]
  - Drug intolerance [Unknown]

NARRATIVE: CASE EVENT DATE: 2016
